FAERS Safety Report 24274488 (Version 1)
Quarter: 2024Q3

REPORT INFORMATION
  Report Type: Spontaneous
  Country: US (occurrence: US)
  Receive Date: 20240902
  Receipt Date: 20240902
  Transmission Date: 20241016
  Serious: Yes (Disabling)
  Sender: TORRENT
  Company Number: US-TORRENT-00013732

PATIENT
  Age: 56 Year
  Sex: Female

DRUGS (1)
  1. DICHLORPHENAMIDE [Suspect]
     Active Substance: DICHLORPHENAMIDE
     Indication: Product used for unknown indication
     Dosage: UNKNOWN
     Route: 065
     Dates: start: 202403

REACTIONS (5)
  - Paraesthesia [Unknown]
  - Condition aggravated [Unknown]
  - Gait disturbance [Unknown]
  - Wheelchair user [Unknown]
  - Pain [Unknown]

NARRATIVE: CASE EVENT DATE: 20240815
